FAERS Safety Report 11529828 (Version 3)
Quarter: 2016Q1

REPORT INFORMATION
  Report Type: Spontaneous
  Country: US (occurrence: US)
  Receive Date: 20150921
  Receipt Date: 20160118
  Transmission Date: 20160525
  Serious: Yes (Death, Hospitalization, Other)
  Sender: FDA-Public Use
  Company Number: US-GLAXOSMITHKLINE-US2015131877

PATIENT
  Age: 80 Year
  Sex: Male

DRUGS (17)
  1. CLOPIDOGREL [Concomitant]
     Active Substance: CLOPIDOGREL BISULFATE
  2. FENOFIBRATE. [Concomitant]
     Active Substance: FENOFIBRATE
  3. AMLODIPINE [Concomitant]
     Active Substance: AMLODIPINE BESYLATE
  4. OXYBUTYNIN [Concomitant]
     Active Substance: OXYBUTYNIN
  5. AZELASTINE [Concomitant]
     Active Substance: AZELASTINE
  6. COLCHICINE. [Concomitant]
     Active Substance: COLCHICINE
  7. ADVAIR HFA [Suspect]
     Active Substance: FLUTICASONE PROPIONATE\SALMETEROL XINAFOATE
     Indication: ASTHMA
     Dosage: 2 PUFF(S), BID
     Route: 055
     Dates: start: 1995
  8. ALBUTEROL. [Concomitant]
     Active Substance: ALBUTEROL
  9. FINASTERIDE. [Concomitant]
     Active Substance: FINASTERIDE
  10. CIPROFLOXACIN. [Concomitant]
     Active Substance: CIPROFLOXACIN
  11. ALFUZOSIN [Concomitant]
     Active Substance: ALFUZOSIN
  12. MAGNESIUM [Concomitant]
     Active Substance: MAGNESIUM
  13. PROAIR HFA [Concomitant]
     Active Substance: ALBUTEROL SULFATE
  14. JANUVIA [Concomitant]
     Active Substance: SITAGLIPTIN PHOSPHATE
  15. LOSARTAN. [Concomitant]
     Active Substance: LOSARTAN
  16. RED YEAST RICE [Concomitant]
     Active Substance: DIETARY SUPPLEMENT
  17. BYSTOLIC [Concomitant]
     Active Substance: NEBIVOLOL HYDROCHLORIDE

REACTIONS (5)
  - Pneumonia [Fatal]
  - Death [Fatal]
  - Cardiac failure [Fatal]
  - Rehabilitation therapy [Unknown]
  - Hospice care [Unknown]

NARRATIVE: CASE EVENT DATE: 20150905
